FAERS Safety Report 7863806-2 (Version None)
Quarter: 2011Q4

REPORT INFORMATION
  Report Type: 
  Country: None (occurrence: None)
  Receive Date: 20111028
  Receipt Date: 20111018
  Transmission Date: 20120403
  Serious: Yes (Other)
  Sender: FDA-Public Use
  Company Number: CH-BIOGENIDEC-2011BI033254

PATIENT
  Age: 61 Year
  Sex: Female

DRUGS (5)
  1. TIZANIDINE HCL [Concomitant]
     Route: 048
  2. AVONEX [Suspect]
     Indication: MULTIPLE SCLEROSIS
     Route: 030
     Dates: start: 20080101, end: 20110101
  3. LIORESAL [Concomitant]
     Route: 048
  4. CLONAZEPAM [Concomitant]
     Indication: PAIN
  5. LEXOTANIL [Concomitant]
     Route: 048

REACTIONS (1)
  - LYMPHOMA [None]
